FAERS Safety Report 5194837-1 (Version None)
Quarter: 2006Q4

REPORT INFORMATION
  Report Type: 
  Country: None (occurrence: None)
  Receive Date: 20061229
  Receipt Date: 20061227
  Transmission Date: 20070319
  Serious: Yes (Hospitalization)
  Sender: FDA-Public Use
  Company Number: 2006PK02703

PATIENT
  Age: 28 Year
  Sex: Female

DRUGS (24)
  1. SEROQUEL [Suspect]
     Route: 048
     Dates: start: 20030804, end: 20030804
  2. SEROQUEL [Suspect]
     Route: 048
     Dates: start: 20030805, end: 20030806
  3. SEROQUEL [Suspect]
     Route: 048
     Dates: start: 20030807, end: 20030807
  4. SEROQUEL [Suspect]
     Route: 048
     Dates: start: 20030808, end: 20030808
  5. SEROQUEL [Suspect]
     Route: 048
     Dates: start: 20030809, end: 20030809
  6. SEROQUEL [Suspect]
     Route: 048
     Dates: start: 20030810, end: 20030812
  7. SEROQUEL [Suspect]
     Route: 048
     Dates: start: 20030813, end: 20030820
  8. SEROQUEL [Suspect]
     Route: 048
     Dates: start: 20030821, end: 20030822
  9. SEROQUEL [Suspect]
     Route: 048
     Dates: start: 20030823, end: 20030824
  10. SEROQUEL [Suspect]
     Route: 048
     Dates: start: 20030825, end: 20030827
  11. SEROQUEL [Suspect]
     Route: 048
     Dates: start: 20030828
  12. FLUANXOL DEPOT [Suspect]
     Route: 030
     Dates: start: 20030807, end: 20030807
  13. FLUANXOL DEPOT [Suspect]
     Route: 030
     Dates: start: 20030812, end: 20030812
  14. FLUANXOL DEPOT [Suspect]
     Route: 030
     Dates: start: 20030826
  15. FLUANXOL [Concomitant]
     Route: 048
     Dates: start: 20030731, end: 20030731
  16. FLUANXOL [Concomitant]
     Route: 048
     Dates: start: 20030801, end: 20030803
  17. FLUANXOL [Concomitant]
     Route: 048
     Dates: start: 20030804, end: 20030804
  18. DOMINAL [Concomitant]
     Route: 048
     Dates: start: 20030721, end: 20030908
  19. AKINETON [Concomitant]
     Route: 048
     Dates: start: 20030714, end: 20030714
  20. AKINETON [Concomitant]
     Route: 048
     Dates: start: 20030715
  21. MIRTAZAPINE [Concomitant]
     Route: 048
     Dates: start: 20030714, end: 20030715
  22. MIRTAZAPINE [Concomitant]
     Route: 048
     Dates: start: 20030716, end: 20030827
  23. MIRTAZAPINE [Concomitant]
     Route: 048
     Dates: start: 20030828, end: 20030910
  24. MIRTAZAPINE [Concomitant]
     Route: 048
     Dates: start: 20030911

REACTIONS (1)
  - GALACTORRHOEA [None]
